FAERS Safety Report 22315162 (Version 1)
Quarter: 2023Q2

REPORT INFORMATION
  Report Type: Spontaneous
  Country: CN (occurrence: None)
  Receive Date: 20230512
  Receipt Date: 20230512
  Transmission Date: 20230722
  Serious: Yes (Hospitalization)
  Sender: FDA-Public Use
  Company Number: 2023A110715

PATIENT
  Age: 39 Year
  Sex: Female

DRUGS (2)
  1. SAVOLITINIB [Suspect]
     Active Substance: SAVOLITINIB
     Indication: Lung neoplasm malignant
     Route: 048
     Dates: start: 20221226, end: 20230106
  2. TAGRISSO [Suspect]
     Active Substance: OSIMERTINIB
     Indication: Lung neoplasm malignant
     Route: 048
     Dates: start: 20221226, end: 20230110

REACTIONS (6)
  - Hepatic function abnormal [Recovered/Resolved]
  - Pain [Recovering/Resolving]
  - Ocular hyperaemia [Unknown]
  - Eye swelling [Unknown]
  - Vision blurred [Unknown]
  - Cyanosis [Unknown]

NARRATIVE: CASE EVENT DATE: 20230110
